FAERS Safety Report 15831815 (Version 1)
Quarter: 2019Q1

REPORT INFORMATION
  Report Type: Spontaneous
  Country: RU (occurrence: RU)
  Receive Date: 20190116
  Receipt Date: 20190116
  Transmission Date: 20190417
  Serious: Yes (Other)
  Sender: FDA-Public Use
  Company Number: RU-ACCORD-102117

PATIENT
  Age: 16 Year
  Sex: Female

DRUGS (2)
  1. PERAMPANEL [Interacting]
     Active Substance: PERAMPANEL
     Indication: EPILEPSY
  2. LEVETIRACETAM. [Suspect]
     Active Substance: LEVETIRACETAM
     Indication: EPILEPSY

REACTIONS (4)
  - Aggression [Recovering/Resolving]
  - Drug interaction [Unknown]
  - Hostility [Recovering/Resolving]
  - Intellectual disability [Recovering/Resolving]
